FAERS Safety Report 9009965 (Version 1)
Quarter: 2013Q1

REPORT INFORMATION
  Report Type: Spontaneous
  Country: US (occurrence: US)
  Receive Date: 20130111
  Receipt Date: 20130111
  Transmission Date: 20140127
  Serious: Yes (Other)
  Sender: FDA-Public Use
  Company Number: CHPA2013US000582

PATIENT
  Age: 72 Year
  Sex: Female

DRUGS (1)
  1. MYOFLEX ANALGESIC CREME [Suspect]
     Indication: MUSCLE SPASMS
     Dosage: UNK, AS NEEDED
     Route: 061
     Dates: start: 1982

REACTIONS (4)
  - Spinal fracture [Recovered/Resolved]
  - Fall [Recovered/Resolved]
  - Orthosis user [Unknown]
  - Off label use [Unknown]
